FAERS Safety Report 19674417 (Version 1)
Quarter: 2021Q3

REPORT INFORMATION
  Report Type: Spontaneous
  Country: ES (occurrence: ES)
  Receive Date: 20210809
  Receipt Date: 20210809
  Transmission Date: 20211014
  Serious: Yes (Death, Hospitalization, Other)
  Sender: FDA-Public Use
  Company Number: ES-AUROBINDO-AUR-APL-2021-033791

PATIENT
  Age: 74 Year
  Sex: Female

DRUGS (8)
  1. FENTANYL. [Interacting]
     Active Substance: FENTANYL
     Indication: BREAKTHROUGH PAIN
     Dosage: 200 MICROGRAM, AS NECESSARY
     Route: 065
     Dates: start: 20210216
  2. SERTRALINE [Suspect]
     Active Substance: SERTRALINE HYDROCHLORIDE
     Indication: ADJUSTMENT DISORDER WITH DEPRESSED MOOD
     Dosage: 50 MILLIGRAM, ONCE A DAY
     Route: 065
     Dates: start: 202102, end: 20210301
  3. OXYCODONE [Concomitant]
     Active Substance: OXYCODONE
     Indication: PRODUCT USED FOR UNKNOWN INDICATION
     Dosage: UNK
     Route: 051
  4. PALEXIA [Interacting]
     Active Substance: TAPENTADOL HYDROCHLORIDE
     Indication: PAIN
     Dosage: 100 MILLIGRAM, ONCE A DAY
     Route: 048
     Dates: start: 20201222, end: 20210216
  5. PALEXIA [Interacting]
     Active Substance: TAPENTADOL HYDROCHLORIDE
     Dosage: 400 MILLIGRAM, ONCE A DAY
     Route: 048
     Dates: start: 20210216, end: 202103
  6. METAMIZOLE [Concomitant]
     Active Substance: METAMIZOLE
     Indication: PAIN
     Dosage: 1725 MILLIGRAM, ONCE A DAY(575 MILLIGRAM, 3/DAY)
     Route: 065
     Dates: start: 20201011, end: 20201222
  7. GABAPENTIN. [Concomitant]
     Active Substance: GABAPENTIN
     Indication: PAIN
     Dosage: 300 MILLIGRAM, ONCE A DAY
     Route: 065
     Dates: start: 20210216
  8. PARACETAMOL [Concomitant]
     Active Substance: ACETAMINOPHEN
     Indication: PAIN
     Dosage: 3 GRAM, ONCE A DAY
     Route: 065
     Dates: start: 20201011, end: 20201222

REACTIONS (10)
  - Neuroendocrine carcinoma [Fatal]
  - Hyperresponsive to stimuli [Recovering/Resolving]
  - Restlessness [Unknown]
  - Serotonin syndrome [Recovered/Resolved]
  - Pelvic pain [Unknown]
  - Flushing [Unknown]
  - Drug interaction [Unknown]
  - Decreased appetite [Unknown]
  - Asthenia [Unknown]
  - Vomiting [Unknown]

NARRATIVE: CASE EVENT DATE: 20210301
